FAERS Safety Report 7631968-8 (Version None)
Quarter: 2011Q3

REPORT INFORMATION
  Report Type: 
  Country: None (occurrence: None)
  Receive Date: 20110725
  Receipt Date: 20110517
  Transmission Date: 20111222
  Serious: Yes (Other)
  Sender: FDA-Public Use
  Company Number: US-BRISTOL-MYERS SQUIBB COMPANY-15750946

PATIENT
  Age: 63 Year
  Sex: Female

DRUGS (6)
  1. MONOPRIL [Concomitant]
  2. SYNTHROID [Concomitant]
  3. COUMADIN [Suspect]
     Indication: DEEP VEIN THROMBOSIS
     Dosage: TAKING COUMADIN FOR 10YRS
  4. TRILEPTAL [Concomitant]
  5. ZOCOR [Concomitant]
  6. COUMADIN [Suspect]
     Indication: PULMONARY EMBOLISM
     Dosage: TAKING COUMADIN FOR 10YRS

REACTIONS (1)
  - INTERNATIONAL NORMALISED RATIO INCREASED [None]
